FAERS Safety Report 21513854 (Version 3)
Quarter: 2022Q4

REPORT INFORMATION
  Report Type: Report from Study
  Country: US (occurrence: US)
  Receive Date: 20221027
  Receipt Date: 20221103
  Transmission Date: 20230112
  Serious: No
  Sender: FDA-Public Use
  Company Number: US-NOVARTISTESTPH-NVSC2022US242244

PATIENT
  Age: 66 Year
  Sex: Male

DRUGS (2)
  1. ILARIS [Suspect]
     Active Substance: CANAKINUMAB
     Indication: Still^s disease
     Dosage: 225 MG, OTHER, EVERY 4 WEEKS
     Route: 058
     Dates: start: 20220830
  2. ILARIS [Suspect]
     Active Substance: CANAKINUMAB
     Dosage: 225 MG, QMO
     Route: 058

REACTIONS (2)
  - Illness [Unknown]
  - Injection site reaction [Recovered/Resolved]

NARRATIVE: CASE EVENT DATE: 20220830
